FAERS Safety Report 8179672-4 (Version None)
Quarter: 2012Q1

REPORT INFORMATION
  Report Type: 
  Country: None (occurrence: None)
  Receive Date: 20120229
  Receipt Date: 20120229
  Transmission Date: 20120608
  Serious: No
  Sender: FDA-Public Use
  Company Number: None

PATIENT
  Age: 64 Year
  Sex: Female

DRUGS (1)
  1. ARM AND HAMMER COMPLETE CARE EXTRA WHITENING TOOTHPASTE [Suspect]

REACTIONS (7)
  - DISCOMFORT [None]
  - GINGIVAL SWELLING [None]
  - PAIN [None]
  - BURNING SENSATION [None]
  - LIP SWELLING [None]
  - SWOLLEN TONGUE [None]
  - OEDEMA MOUTH [None]
